FAERS Safety Report 20659011 (Version 1)
Quarter: 2022Q1

REPORT INFORMATION
  Report Type: Report from Study
  Country: US (occurrence: US)
  Receive Date: 20220331
  Receipt Date: 20220331
  Transmission Date: 20220423
  Serious: Yes (Other)
  Sender: FDA-Public Use
  Company Number: US-PFIZER INC-202200454734

PATIENT
  Age: 53 Year
  Sex: Male
  Weight: 75.7 kg

DRUGS (69)
  1. FLUDARABINE PHOSPHATE [Suspect]
     Active Substance: FLUDARABINE PHOSPHATE
     Indication: Chronic lymphocytic leukaemia
     Dosage: 56.25 MG, 1X/DAY
     Route: 042
     Dates: start: 20220211, end: 20220213
  2. CYCLOPHOSPHAMIDE [Suspect]
     Active Substance: CYCLOPHOSPHAMIDE
     Indication: Chronic lymphocytic leukaemia
     Dosage: 567 MG, 1X/DAY
     Route: 042
     Dates: start: 20220211, end: 20220213
  3. VENETOCLAX [Suspect]
     Active Substance: VENETOCLAX
     Indication: Chronic lymphocytic leukaemia
     Dosage: DOSE LEVEL 1: 50 MG (D2-30), 100 MG (D31-90)
     Route: 048
     Dates: start: 20220113, end: 20220209
  4. EVUSHELD [Suspect]
     Active Substance: CILGAVIMAB\TIXAGEVIMAB
     Indication: Immunisation
     Dosage: UNK, SINGLE
     Dates: start: 20220211, end: 20220211
  5. ACETAMINOPHEN [Concomitant]
     Active Substance: ACETAMINOPHEN
     Indication: Pyrexia
     Dosage: PRN COMMENT: TEMPERATURE GREATER THAN 38.3 C. ADMIN INSTRUCTIONS: PATIENTS ON IMATINIB MESYLATE SHOU
     Route: 048
     Dates: start: 20220210
  6. ALLOPURINOL [Concomitant]
     Active Substance: ALLOPURINOL
     Indication: Product used for unknown indication
     Dosage: 300 MG, 1 IN 1 D
     Route: 048
     Dates: start: 20220210
  7. ALLOPURINOL [Concomitant]
     Active Substance: ALLOPURINOL
     Dosage: 300 MG, 1 IN 1 D
     Route: 048
     Dates: start: 20220211
  8. ALLOPURINOL [Concomitant]
     Active Substance: ALLOPURINOL
     Dosage: 300 MG, 1 IN 1 D
     Route: 048
     Dates: start: 20220212
  9. ALLOPURINOL [Concomitant]
     Active Substance: ALLOPURINOL
     Dosage: 300 MG, 1 IN 1 D
     Route: 048
     Dates: start: 20220213
  10. METHYLPREDNISOLONE [Concomitant]
     Active Substance: METHYLPREDNISOLONE
     Indication: Product used for unknown indication
     Dosage: 1000 MG, 1 IN 24 HR
     Route: 042
  11. ALUMINUM HYDROXIDE\DIMETHICONE\MAGNESIUM HYDROXIDE [Concomitant]
     Active Substance: ALUMINUM HYDROXIDE\DIMETHICONE\MAGNESIUM HYDROXIDE
     Indication: Dyspepsia
     Dosage: 200 MG-200MG-20 MG/5 ML. ADMIN INSTRUCTIONS: SHAKE WELL BEFORE USE, PRN (SUSPENSION)
     Route: 048
     Dates: start: 20220210
  12. ATORVASTATIN [Concomitant]
     Active Substance: ATORVASTATIN
     Indication: Product used for unknown indication
     Dosage: 40 MG, 1 IN 1 D
     Route: 048
     Dates: start: 20220210
  13. ATORVASTATIN [Concomitant]
     Active Substance: ATORVASTATIN
     Dosage: 40 MG, 1 IN 1 D
     Route: 048
     Dates: start: 20220211
  14. ATORVASTATIN [Concomitant]
     Active Substance: ATORVASTATIN
     Dosage: 40 MG, 1 IN 1 D
     Route: 048
     Dates: start: 20220212
  15. ATORVASTATIN [Concomitant]
     Active Substance: ATORVASTATIN
     Dosage: 40 MG, 1 IN 1 D
     Route: 048
     Dates: start: 20220213
  16. CALAMINE/MENTHOL/ZINC OXIDE [Concomitant]
     Indication: Erythema
     Dosage: 3.5%-0.2%-16.5% TOPICAL PASTE. INDICATIONS COMMENT: REDNESS DUE TO INCONTINENCE, FREQUENT STOOLING A
     Route: 061
     Dates: start: 20220210
  17. CALAMINE/MENTHOL/ZINC OXIDE [Concomitant]
     Indication: Frequent bowel movements
  18. CALAMINE/MENTHOL/ZINC OXIDE [Concomitant]
     Indication: Eczema
  19. DEXTROMETHORPHAN HYDROBROMIDE\GUAIFENESIN [Concomitant]
     Active Substance: DEXTROMETHORPHAN HYDROBROMIDE\GUAIFENESIN
     Indication: Cough
     Dosage: 60 ML, PRN
     Route: 048
     Dates: start: 20220210
  20. DIPHENHYDRAMINE [Concomitant]
     Active Substance: DIPHENHYDRAMINE
     Indication: Premedication
     Dosage: ADMIN INSTRUCTIONS: IF IV, ADMINISTER PER IV PUSH POLICY. PROTECT FROM LIGHT. PRN
     Route: 042
     Dates: start: 20220212
  21. ENTECAVIR [Concomitant]
     Active Substance: ENTECAVIR
     Indication: Premedication
     Dosage: ADMIN INSTRUCTIONS: HAZARDOUS DRUG. ADMINISTER 1 HOUR BEFORE OR 2 HOURS AFTER MEALS. DP NOT CRUSH, B
     Route: 048
     Dates: start: 20220210
  22. ENTECAVIR [Concomitant]
     Active Substance: ENTECAVIR
     Dosage: ADMIN INSTRUCTIONS: HAZARDOUS DRUG. ADMINISTER 1 HOUR BEFORE OR 2 HOURS AFTER MEALS. DP NOT CRUSH, B
     Route: 048
     Dates: start: 20220211
  23. ENTECAVIR [Concomitant]
     Active Substance: ENTECAVIR
     Dosage: ADMIN INSTRUCTIONS: HAZARDOUS DRUG. ADMINISTER 1 HOUR BEFORE OR 2 HOURS AFTER MEALS. DP NOT CRUSH, B
     Route: 048
     Dates: start: 20220212
  24. ENTECAVIR [Concomitant]
     Active Substance: ENTECAVIR
     Dosage: ADMIN INSTRUCTIONS: HAZARDOUS DRUG. ADMINISTER 1 HOUR BEFORE OR 2 HOURS AFTER MEALS. DP NOT CRUSH, B
     Route: 048
     Dates: start: 20220213
  25. LIDOCAINE [Concomitant]
     Active Substance: LIDOCAINE
     Indication: Product used for unknown indication
     Dosage: PRN COMMENT: INSERT VASCULAR DEVICE. ADMIN INSTRUCTIONS: PICC PROCEDURES: ADMINISTER 5 ML (50 MG) X
     Route: 058
     Dates: start: 20220210
  26. LIDOCAINE [Concomitant]
     Active Substance: LIDOCAINE
     Dosage: PRN COMMENT: INSERT VASCULAR DEVICE. ADMIN INSTRUCTIONS: PICC PROCEDURES: ADMINISTER 5 ML (50 MG) X
     Route: 058
     Dates: start: 20220211
  27. LOPERAMIDE [Concomitant]
     Active Substance: LOPERAMIDE
     Indication: Diarrhoea
     Dosage: ADMIN INSTRUCTIONS: ADMINISTER 1 CAPSULE AFTER EACH LOOSE STOOL, UP TO 8 CAPSULES PER DAY, PRN
     Route: 048
     Dates: start: 20220210
  28. SITAGLIPTIN [Concomitant]
     Active Substance: SITAGLIPTIN
     Indication: Product used for unknown indication
     Dosage: 100 MG, 1 IN 1 D
     Route: 048
     Dates: start: 20220211
  29. SITAGLIPTIN [Concomitant]
     Active Substance: SITAGLIPTIN
     Dosage: 100 MG, 1 IN 1 D
     Route: 048
     Dates: start: 20220212
  30. SITAGLIPTIN [Concomitant]
     Active Substance: SITAGLIPTIN
     Dosage: 100 MG, 1 IN 1 D
     Route: 048
     Dates: start: 20220213
  31. SODIUM BICARBONATE\SODIUM CHLORIDE [Concomitant]
     Active Substance: SODIUM BICARBONATE\SODIUM CHLORIDE
     Indication: Product used for unknown indication
     Dosage: ROUTE: SWISH AND SPIT. PRN COMMENT: FOR MOUTH CARE. ADMIN INSTRUCTIONS: DISSOLVE 2.5 ML OF POWDER IN
     Dates: start: 20220210
  32. SODIUM BICARBONATE\SODIUM CHLORIDE [Concomitant]
     Active Substance: SODIUM BICARBONATE\SODIUM CHLORIDE
     Dosage: ROUTE: SWISH AND SPIT. ADMIN INSTRUCTIONS: GIVE WHILE PATIENT IS AWAKE. ADMIN INSTRUCTIONS: DISSOLVE
     Dates: start: 20220211
  33. SODIUM BICARBONATE\SODIUM CHLORIDE [Concomitant]
     Active Substance: SODIUM BICARBONATE\SODIUM CHLORIDE
     Dosage: ROUTE: SWISH AND SPIT. ADMIN INSTRUCTIONS: GIVE WHILE PATIENT IS AWAKE. ADMIN INSTRUCTIONS: DISSOLVE
     Dates: start: 20220212
  34. SODIUM BICARBONATE\SODIUM CHLORIDE [Concomitant]
     Active Substance: SODIUM BICARBONATE\SODIUM CHLORIDE
     Dosage: ROUTE: SWISH AND SPIT. ADMIN INSTRUCTIONS: GIVE WHILE PATIENT IS AWAKE. ADMIN INSTRUCTIONS: DISSOLVE
     Dates: start: 20220213
  35. SODIUM CHLORIDE [Concomitant]
     Active Substance: SODIUM CHLORIDE
     Indication: Vascular device occlusion
     Dosage: UNK, AS NEEDED
     Dates: start: 20220210
  36. SODIUM CHLORIDE [Concomitant]
     Active Substance: SODIUM CHLORIDE
     Dosage: 0.9% IV KVO, DOSE: 20 ML/HR. PRN COMMENT: KVO LINE MAINTENANCE, AS NEEDED
     Route: 042
     Dates: start: 20220210
  37. SODIUM CHLORIDE [Concomitant]
     Active Substance: SODIUM CHLORIDE
     Dosage: 0.9% (NON-PVC) (NS) IV FLUSH 25 ML. ADMIN INSTRUCTIONS: FLUSH POST CHEMOTHERAPY/BIOTHERAPY, AS NEEDE
     Route: 042
     Dates: start: 20220210
  38. SODIUM CHLORIDE [Concomitant]
     Active Substance: SODIUM CHLORIDE
     Dosage: 0.9% (NS) INFUSION: RATE: 42 ML/HR. DOSE: 42 ML/HR. FREQ: CONTINUOUS, CONTINUOUS
     Route: 042
     Dates: start: 20220210
  39. SODIUM CHLORIDE [Concomitant]
     Active Substance: SODIUM CHLORIDE
     Dosage: 0.9% (NS) INFUSION: RATE: 42 ML/HR. DOSE: 42 ML/HR. FREQ: CONTINUOUS, CONTINUOUS
     Route: 042
     Dates: start: 20220211
  40. SODIUM CHLORIDE [Concomitant]
     Active Substance: SODIUM CHLORIDE
     Dosage: 0.9% (NS) INFUSION: RATE: 42 ML/HR. DOSE: 42 ML/HR. FREQ: CONTINUOUS, CONTINUOUS
     Route: 042
     Dates: start: 20220212
  41. SODIUM CHLORIDE [Concomitant]
     Active Substance: SODIUM CHLORIDE
     Dosage: 0.9% (NS) INFUSION: RATE: 42 ML/HR. DOSE: 42 ML/HR. FREQ: CONTINUOUS, CONTINUOUS
     Route: 042
     Dates: start: 20220213
  42. SODIUM CHLORIDE [Concomitant]
     Active Substance: SODIUM CHLORIDE
     Dosage: 0.9% (PF) (NS) INJECTION VIAL 0-20 ML. DOSE: 0-20 ML. PRN COMMENT: MEDICATION PREPARATION. ADMIN INS
     Route: 042
     Dates: start: 20220210
  43. SODIUM CHLORIDE [Concomitant]
     Active Substance: SODIUM CHLORIDE
     Dosage: (NS) 0.9% IV BOLUS 1000 ML. ADMIN INSTRUCTIONS: START AFTER COMPLETION OF CYCLOPHOSPHAMIDE, ONCE
     Route: 042
     Dates: start: 20220213, end: 20220213
  44. SODIUM CHLORIDE [Concomitant]
     Active Substance: SODIUM CHLORIDE
     Dosage: (NS) 0.9% IV BOLUS 1000 ML. ADMIN INSTRUCTIONS: START 2 HOURS PRIOR TO CYCLOPHOSPHAMIDE, ONCE
     Route: 042
     Dates: start: 20220213, end: 20220213
  45. SODIUM CHLORIDE [Concomitant]
     Active Substance: SODIUM CHLORIDE
     Dosage: (NS) 0.9% IV BOLUS 1000 ML. ADMIN INSTRUCTIONS: START AFTER COMPLETION OF CYCLOPHOSPHAMIDE, ONCE
     Route: 042
     Dates: start: 20220212, end: 20220212
  46. SODIUM CHLORIDE [Concomitant]
     Active Substance: SODIUM CHLORIDE
     Dosage: (NS) 0.9% IV BOLUS 1000 ML. ADMIN INSTRUCTIONS: START 2 HOURS PRIOR TO CYCLOPHOSPHAMIDE, ONCE
     Route: 042
     Dates: start: 20220212, end: 20220212
  47. SODIUM CHLORIDE [Concomitant]
     Active Substance: SODIUM CHLORIDE
     Dosage: (NS) 0.9% IV BOLUS 1000 ML. ADMIN INSTRUCTIONS: START AFTER COMPLETION OF CYCLOPHOSPHAMIDE, ONCE
     Route: 042
     Dates: start: 20220211, end: 20220211
  48. SODIUM CHLORIDE [Concomitant]
     Active Substance: SODIUM CHLORIDE
     Dosage: (NS) 0.9% IV BOLUS 1000 ML. ADMIN INSTRUCTIONS: START 2 HOURS PRIOR TO CYCLOPHOSPHAMIDE, ONCE
     Route: 042
     Dates: start: 20220211, end: 20220211
  49. TRAMADOL [Concomitant]
     Active Substance: TRAMADOL
     Indication: Headache
     Dosage: ADMIN INSTRUCTIONS: MAXIMUM DAILY DOSE IS 400 MG (PATIENTS LESS THAN 75 YEARS) OR 300 MG (PATIENTS 7
     Route: 048
     Dates: start: 20220210
  50. TRAMADOL [Concomitant]
     Active Substance: TRAMADOL
     Indication: Pain
  51. VALACYCLOVIR [Concomitant]
     Active Substance: VALACYCLOVIR HYDROCHLORIDE
     Indication: Product used for unknown indication
     Dosage: 500 MG, 1 IN 1 D
     Route: 048
     Dates: start: 20220210
  52. VALACYCLOVIR [Concomitant]
     Active Substance: VALACYCLOVIR HYDROCHLORIDE
     Dosage: 500 MG, 1 IN 1 D
     Route: 048
     Dates: start: 20220211
  53. VALACYCLOVIR [Concomitant]
     Active Substance: VALACYCLOVIR HYDROCHLORIDE
     Dosage: 500 MG, 1 IN 1 D
     Route: 048
     Dates: start: 20220212
  54. VALACYCLOVIR [Concomitant]
     Active Substance: VALACYCLOVIR HYDROCHLORIDE
     Dosage: 500 MG, 1 IN 1 D
     Route: 048
     Dates: start: 20220213
  55. TIXAGEVIMAB [Concomitant]
     Active Substance: TIXAGEVIMAB
     Indication: Product used for unknown indication
     Dosage: ADMIN INSTRUCTIONS: ONE FULL DOSE EVUSHELD EQUALS ONE INJECTION OF TIXAGEVIMAB AND ONE INJECTION OF
     Route: 030
     Dates: start: 20220211, end: 20220211
  56. CILGAVIMAB [Concomitant]
     Active Substance: CILGAVIMAB
     Indication: Product used for unknown indication
     Dosage: ADMIN INSTRUCTIONS: ONE FULL DOSE EVUSHELD EQUALS ONE INJECTION OF TIXAGEVIMAB AND ONE INJECTION OF
     Route: 030
     Dates: start: 20220211, end: 20220211
  57. OMNIPAQUE [Concomitant]
     Active Substance: IOHEXOL
     Indication: Product used for unknown indication
     Dosage: 240 MG IODINE/ML INJECTION FOR ORAL/RECTAL USE 2-50 ML. DOSE: 2-50 ML. FREQ: ONCE IN IMAGING. PRN RE
     Dates: start: 20220213, end: 20220213
  58. ZOFRAN [Concomitant]
     Active Substance: ONDANSETRON HYDROCHLORIDE
     Indication: Product used for unknown indication
     Dosage: IVPB 16 MG IN 50 ML NS (CMPD). ADMIN INSTRUCTIONS: REFRIGERATE, ONCE
     Route: 042
     Dates: start: 20220211, end: 20220211
  59. ZOFRAN [Concomitant]
     Active Substance: ONDANSETRON HYDROCHLORIDE
     Dosage: IVPB 16 MG IN 50 ML NS (CMPD). ADMIN INSTRUCTIONS: REFRIGERATE, ONCE
     Route: 042
     Dates: start: 20220212, end: 20220212
  60. ZOFRAN [Concomitant]
     Active Substance: ONDANSETRON HYDROCHLORIDE
     Dosage: IVPB 16 MG IN 50 ML NS (CMPD). ADMIN INSTRUCTIONS: REFRIGERATE, ONCE
     Route: 042
     Dates: start: 20220213, end: 20220213
  61. SIMETHICONE (DIMETHICONE) [Concomitant]
     Active Substance: DIMETHICONE
     Indication: Product used for unknown indication
     Dosage: UNK, ONCE
     Route: 048
     Dates: start: 20220213, end: 20220213
  62. LANTUS [Concomitant]
     Active Substance: INSULIN GLARGINE
     Indication: Type 2 diabetes mellitus
     Dosage: 100 UNITS/M INJECTION 10 UNITS. ADMIN INSTRUCTIONS: HOLD BASAL INSULIN IF GLUCOSE LESS THAN 120 MG/D
     Route: 042
     Dates: start: 20220211, end: 20220211
  63. LANTUS [Concomitant]
     Active Substance: INSULIN GLARGINE
     Dosage: 100 UNITS/M INJECTION 10 UNITS. ADMIN INSTRUCTIONS: HOLD BASAL INSULIN IF GLUCOSE LESS THAN 120 MG/D
     Route: 042
     Dates: start: 20220210, end: 20220211
  64. LANTUS [Concomitant]
     Active Substance: INSULIN GLARGINE
     Dosage: 100 UNITS/M INJECTION 10 UNITS. ADMIN INSTRUCTIONS: HOLD BASAL INSULIN IF GLUCOSE LESS THAN 120 MG/D
     Route: 042
     Dates: start: 20220212, end: 20220214
  65. HUMALOG [Concomitant]
     Active Substance: INSULIN LISPRO
     Indication: Product used for unknown indication
     Dosage: 100 UNITS/ML INJECTION 6 UNITS. ADMIN INSTRUCTIONS: THIS IS PREMEAL INSULIN. DO NOT GIVE IF NOT EATI
     Route: 058
     Dates: start: 20220211, end: 20220212
  66. HUMALOG [Concomitant]
     Active Substance: INSULIN LISPRO
     Dosage: 100 UNITS/ML INJECTION 6 UNITS. ADMIN INSTRUCTIONS: THIS IS PREMEAL INSULIN. DO NOT GIVE IF NOT EATI
     Route: 058
     Dates: start: 20220212, end: 20220214
  67. GLYXAMBI [Concomitant]
     Active Substance: EMPAGLIFLOZIN\LINAGLIPTIN
     Indication: Product used for unknown indication
     Dosage: 25 MG/5 MG EVERY, EVERY MORNING
  68. VENETOCLAX [Concomitant]
     Active Substance: VENETOCLAX
     Indication: Product used for unknown indication
     Dosage: 200 MG, 1 IN 1 D
  69. TRESIBA [Concomitant]
     Active Substance: INSULIN DEGLUDEC
     Indication: Product used for unknown indication
     Dosage: 20 IU UNDER SKIN DAILY, 1 IN 1 D
     Route: 058

REACTIONS (1)
  - Myelitis [Not Recovered/Not Resolved]

NARRATIVE: CASE EVENT DATE: 20220213
